FAERS Safety Report 7685245-X (Version None)
Quarter: 2011Q3

REPORT INFORMATION
  Report Type: 
  Country: None (occurrence: None)
  Receive Date: 20110816
  Receipt Date: 20110804
  Transmission Date: 20111222
  Serious: Yes (Hospitalization, Other)
  Sender: FDA-Public Use
  Company Number: DE-ELI_LILLY_AND_COMPANY-DE201105002737

PATIENT
  Age: 74 Year
  Sex: Female
  Weight: 90 kg

DRUGS (20)
  1. ENOXAPARIN SODIUM [Concomitant]
  2. ACTRAPID                           /00030501/ [Concomitant]
     Dosage: UNK, PRN
  3. BISOPROLOL FUMARATE [Concomitant]
     Dosage: 5 MG, QD
  4. OMEPRAZOLE [Concomitant]
     Dosage: 20 MG, QD
  5. POLYETHYLENE GLYCOL [Concomitant]
     Dosage: UNK, QD
  6. ASPIRIN [Concomitant]
     Dosage: 100 MG, QD
  7. TORSEMIDE [Concomitant]
     Dosage: 10 MG, BID
  8. PENTAERYTHRITOL TETRANITRATE [Concomitant]
     Dosage: UNK, BID
  9. TILIDIN [Concomitant]
     Dosage: UNK, BID
  10. VALSARTAN [Concomitant]
     Dosage: 80 MG, QD
  11. PHENPROCOUMON [Concomitant]
  12. VALSARTAN/HYDROCHLOORTHIAZIDE [Concomitant]
     Dosage: UNK, QD
  13. PREDNISONE [Concomitant]
     Dosage: 20 MG, QD
  14. MARCUMAR [Concomitant]
     Dosage: UNK
  15. ACTRAPHANE HM 30/70 [Concomitant]
     Dosage: 30 DF, UNK
     Route: 058
  16. BEPANTHEN [Concomitant]
     Dosage: UNK, TID
  17. BYETTA [Suspect]
     Indication: TYPE 2 DIABETES MELLITUS
     Dosage: 10 UG, BID
     Route: 058
     Dates: start: 20110106, end: 20110201
  18. METFORMIN HCL [Concomitant]
  19. SIMAVASTATIN [Concomitant]
     Dosage: 20 MG, QD
  20. SITAGLIPTIN [Concomitant]

REACTIONS (11)
  - ORAL CANDIDIASIS [None]
  - HYPERTENSION [None]
  - ATRIAL FIBRILLATION [None]
  - ANAEMIA [None]
  - HEPATIC ENZYME INCREASED [None]
  - CARDIAC FAILURE [None]
  - SKIN DISORDER [None]
  - COAGULATION TEST ABNORMAL [None]
  - DERMATITIS ALLERGIC [None]
  - BLOOD PRESSURE DECREASED [None]
  - HYPERSENSITIVITY [None]
